FAERS Safety Report 10335537 (Version 3)
Quarter: 2014Q3

REPORT INFORMATION
  Report Type: Report from Study
  Country: NL (occurrence: NL)
  Receive Date: 20140723
  Receipt Date: 20140908
  Transmission Date: 20150326
  Serious: Yes (Life-Threatening)
  Sender: FDA-Public Use
  Company Number: NL-CELGENEUS-114-21880-14071838

PATIENT
  Age: 72 Year
  Sex: Male
  Weight: 78 kg

DRUGS (14)
  1. COLISTIN SULFATE [Concomitant]
     Active Substance: COLISTIN SULFATE
     Indication: DYSPNOEA
     Dosage: 760 MILLIGRAM
     Route: 048
     Dates: start: 20140617, end: 20140626
  2. METFORMIN [Concomitant]
     Active Substance: METFORMIN HYDROCHLORIDE
     Indication: DIABETES MELLITUS
     Dosage: 250 MILLIGRAM
     Route: 048
     Dates: start: 20140617, end: 20140703
  3. BENZYLPENICILLIN [Concomitant]
     Active Substance: PENICILLIN G
     Indication: PYREXIA
     Dosage: 6
     Route: 041
     Dates: start: 20140701, end: 20140703
  4. MORFINE [Concomitant]
     Active Substance: MORPHINE
     Indication: ANALGESIC THERAPY
     Dosage: 24 MILLIGRAM
     Route: 041
     Dates: start: 20140629, end: 20140629
  5. CYTARABINE. [Suspect]
     Active Substance: CYTARABINE
     Indication: ACUTE MYELOID LEUKAEMIA
     Route: 041
     Dates: start: 20140617, end: 20140623
  6. TOBRAMYCIN [Concomitant]
     Active Substance: TOBRAMYCIN
     Indication: FEBRILE NEUTROPENIA
     Dosage: 385 MILLIGRAM
     Route: 041
     Dates: start: 20140628, end: 20140701
  7. REVLIMID [Suspect]
     Active Substance: LENALIDOMIDE
     Indication: ACUTE MYELOID LEUKAEMIA
     Route: 048
     Dates: start: 20140617, end: 20140703
  8. TAZOCIN [Concomitant]
     Active Substance: PIPERACILLIN SODIUM\TAZOBACTAM SODIUM
     Indication: FEBRILE NEUTROPENIA
     Dosage: 16/20
     Route: 041
     Dates: start: 20140628, end: 20140701
  9. ONDANSETRON [Concomitant]
     Active Substance: ONDANSETRON
     Indication: ANTIEMETIC SUPPORTIVE CARE
     Dosage: 16 MILLIGRAM
     Route: 041
     Dates: start: 20140617, end: 20140623
  10. TOBRAMYCIN [Concomitant]
     Active Substance: TOBRAMYCIN
     Route: 041
  11. DAUNOMYCIN [Suspect]
     Active Substance: DAUNORUBICIN
     Indication: ACUTE MYELOID LEUKAEMIA
     Route: 041
     Dates: start: 20140617, end: 20140619
  12. ALLOPURINOL. [Concomitant]
     Active Substance: ALLOPURINOL
     Indication: PROPHYLAXIS
     Dosage: 300 MILLIGRAM
     Route: 048
     Dates: start: 20140616, end: 20140629
  13. TAZOCIN [Concomitant]
     Active Substance: PIPERACILLIN SODIUM\TAZOBACTAM SODIUM
  14. FLUCONAZOL [Concomitant]
     Active Substance: FLUCONAZOLE
     Indication: DYSPNOEA
     Dosage: 400 MILLIGRAM
     Route: 048
     Dates: start: 20140617, end: 20140703

REACTIONS (3)
  - Hepatic enzyme increased [Recovered/Resolved with Sequelae]
  - Supraventricular tachycardia [Recovered/Resolved with Sequelae]
  - Respiratory failure [Recovered/Resolved with Sequelae]

NARRATIVE: CASE EVENT DATE: 20140703
